FAERS Safety Report 22078382 (Version 1)
Quarter: 2023Q1

REPORT INFORMATION
  Report Type: Spontaneous
  Country: US (occurrence: US)
  Receive Date: 20230309
  Receipt Date: 20230309
  Transmission Date: 20230418
  Serious: Yes (Death, Other)
  Sender: FDA-Public Use
  Company Number: US-INCYTE CORPORATION-2023IN002337

PATIENT

DRUGS (2)
  1. JAKAFI [Suspect]
     Active Substance: RUXOLITINIB
     Indication: Graft versus host disease
     Dosage: 1 TABLET (10MG) AND ONE HALF TABLET (5MG)
     Route: 065
     Dates: start: 202105
  2. LANTUS SOLOSTAR [Concomitant]
     Active Substance: INSULIN GLARGINE
     Indication: Product used for unknown indication
     Dosage: 100/ML
     Route: 065

REACTIONS (2)
  - Death [Fatal]
  - Wrong technique in product usage process [Unknown]

NARRATIVE: CASE EVENT DATE: 20210501
